FAERS Safety Report 14703579 (Version 2)
Quarter: 2018Q2

REPORT INFORMATION
  Report Type: Spontaneous
  Country: BE (occurrence: BE)
  Receive Date: 20180402
  Receipt Date: 20180418
  Transmission Date: 20180711
  Serious: Yes (Life-Threatening, Hospitalization, Disabling)
  Sender: FDA-Public Use
  Company Number: BE-JNJFOC-20180332173

PATIENT
  Age: 12 Year
  Sex: Male
  Weight: 48 kg

DRUGS (4)
  1. IBUPROFENE 400 MG [Suspect]
     Active Substance: IBUPROFEN
     Indication: PYREXIA
     Route: 048
     Dates: start: 20180111, end: 20180114
  2. PARACETAMOL 500 MG [Suspect]
     Active Substance: ACETAMINOPHEN
     Indication: PYREXIA
     Route: 048
     Dates: start: 20180111, end: 20180114
  3. TAMIFLU [Suspect]
     Active Substance: OSELTAMIVIR PHOSPHATE
     Indication: PRODUCT USED FOR UNKNOWN INDICATION
     Route: 048
     Dates: start: 20180111, end: 20180114
  4. IBUPROFENE 400 MG [Suspect]
     Active Substance: IBUPROFEN
     Route: 048

REACTIONS (4)
  - Acute respiratory distress syndrome [Recovering/Resolving]
  - Shock [Recovering/Resolving]
  - Pneumonia [Recovering/Resolving]
  - Acute kidney injury [Recovering/Resolving]

NARRATIVE: CASE EVENT DATE: 20180114
